FAERS Safety Report 9290556 (Version 2)
Quarter: 2013Q2

REPORT INFORMATION
  Report Type: Report from Study
  Country: ES (occurrence: ES)
  Receive Date: 20130515
  Receipt Date: 20130627
  Transmission Date: 20140414
  Serious: Yes (Other)
  Sender: FDA-Public Use
  Company Number: ES-ROCHE-CID000000002417302

PATIENT
  Age: 56 Year
  Sex: Male

DRUGS (3)
  1. CELLCEPT [Suspect]
     Indication: PRODUCT USED FOR UNKNOWN INDICATION
     Route: 065
  2. CYCLOSPORIN [Concomitant]
  3. GANCICLOVIR [Concomitant]

REACTIONS (1)
  - Transplant rejection [Unknown]
